FAERS Safety Report 5306025-6 (Version None)
Quarter: 2007Q2

REPORT INFORMATION
  Report Type: 
  Country: None (occurrence: None)
  Receive Date: 20070416
  Receipt Date: 20070404
  Transmission Date: 20071010
  Serious: Yes (Death)
  Sender: FDA-Public Use
  Company Number: GRT 2007-11015

PATIENT
  Age: 87 Year
  Sex: Female
  Weight: 53 kg

DRUGS (16)
  1. LIDODERM [Suspect]
     Indication: POST HERPETIC NEURALGIA
     Dosage: 3 PATCHES
     Dates: start: 20031106
  2. NORTRIPTYLINE HCL [Concomitant]
  3. GABAPENTIN [Concomitant]
  4. LACTULOSE [Concomitant]
  5. WARFARIN [Concomitant]
  6. DIGOXIN [Concomitant]
  7. BECLOMETHASONE DIPROPIONATE [Concomitant]
  8. SALMETEROL [Concomitant]
  9. DIDRONEL PMO [Concomitant]
  10. AMOXICILLIN [Concomitant]
  11. VIOXX [Concomitant]
  12. SERETIDE [Concomitant]
  13. MONTELUKAST SODIUM [Concomitant]
  14. GLYCERIN [Concomitant]
  15. SENOKOT [Concomitant]
  16. BUSPIRONE HCL [Concomitant]

REACTIONS (5)
  - HAEMOPTYSIS [None]
  - INTERNATIONAL NORMALISED RATIO INCREASED [None]
  - MYOCARDIAL INFARCTION [None]
  - PNEUMONIA ASPIRATION [None]
  - PULMONARY OEDEMA [None]
